FAERS Safety Report 5838076-7 (Version None)
Quarter: 2008Q3

REPORT INFORMATION
  Report Type: 
  Country: None (occurrence: None)
  Receive Date: 20080808
  Receipt Date: 20080520
  Transmission Date: 20090109
  Serious: No
  Sender: FDA-Public Use
  Company Number: A0728820A

PATIENT
  Age: 38 Year
  Sex: Female

DRUGS (3)
  1. PAXIL [Suspect]
     Dosage: 20MG PER DAY
     Route: 048
     Dates: start: 20040101
  2. WELLBUTRIN XL [Suspect]
     Indication: ANXIETY
     Dosage: 300MG PER DAY
     Route: 048
     Dates: start: 20080505
  3. BIRTH CONTROL [Concomitant]

REACTIONS (4)
  - ABDOMINAL PAIN [None]
  - LOSS OF LIBIDO [None]
  - MOOD ALTERED [None]
  - WEIGHT INCREASED [None]
